FAERS Safety Report 18489786 (Version 4)
Quarter: 2021Q1

REPORT INFORMATION
  Report Type: Spontaneous
  Country: IT (occurrence: IT)
  Receive Date: 20201111
  Receipt Date: 20210122
  Transmission Date: 20210419
  Serious: Yes (Hospitalization)
  Sender: FDA-Public Use
  Company Number: IT-AUROBINDO-AUR-APL-2020-055320

PATIENT
  Age: 51 Year
  Sex: Male

DRUGS (6)
  1. AZITHROMYCIN ANHYDROUS. [Suspect]
     Active Substance: AZITHROMYCIN ANHYDROUS
     Indication: COVID-19 PNEUMONIA
     Dosage: 500 MILLIGRAM, ONCE A DAY
     Route: 065
  2. LOPINAVIR/RITONAVIR [Suspect]
     Active Substance: LOPINAVIR\RITONAVIR
     Indication: COVID-19 PNEUMONIA
     Dosage: UNK UNK, ONCE A DAY (400/100)
     Route: 048
  3. LOPINAVIR/RITONAVIR [Suspect]
     Active Substance: LOPINAVIR\RITONAVIR
     Dosage: 1 DOSAGE FORM, ONCE A DAY, (LOPINAVIR/RITONAVIR 400/100 DAILY)
     Route: 065
  4. TOCILIZUMAB. [Suspect]
     Active Substance: TOCILIZUMAB
     Indication: COVID-19 PNEUMONIA
     Dosage: 600 MILLIGRAM, ONCE A DAY
     Route: 065
  5. HYDROXYCHLOROQUINE [Suspect]
     Active Substance: HYDROXYCHLOROQUINE
     Indication: COVID-19 PNEUMONIA
     Dosage: 400 MILLIGRAM, ONCE A DAY
     Route: 065
  6. TOCILIZUMAB. [Suspect]
     Active Substance: TOCILIZUMAB
     Dosage: 8 MILLIGRAM/KILOGRAM, ONCE A DAY, (GIVEN ON TWO CONSECUTIVE DAYS; TOTAL TOCILIZUMAB DOSE: 600MG)
     Route: 065

REACTIONS (4)
  - Liver injury [Recovered/Resolved]
  - Drug effective for unapproved indication [Unknown]
  - Condition aggravated [Recovered/Resolved]
  - Off label use [Recovered/Resolved]
